FAERS Safety Report 5981295-X (Version None)
Quarter: 2008Q4

REPORT INFORMATION
  Report Type: 
  Country: None (occurrence: None)
  Receive Date: 20081205
  Receipt Date: 20081117
  Transmission Date: 20090506
  Serious: Yes (Other)
  Sender: FDA-Public Use
  Company Number: US-JNJFOC-20080804975

PATIENT
  Sex: Female

DRUGS (8)
  1. REMICADE [Suspect]
     Route: 042
  2. REMICADE [Suspect]
     Route: 042
  3. REMICADE [Suspect]
     Route: 042
  4. REMICADE [Suspect]
     Indication: CROHN'S DISEASE
     Route: 042
  5. YAZ [Concomitant]
     Indication: CONTRACEPTION
  6. EXCEDRIN (MIGRAINE) [Concomitant]
     Indication: PAIN
  7. TYLENOL (CAPLET) [Concomitant]
     Indication: PREMEDICATION
  8. ZYRTEC [Concomitant]
     Indication: PREMEDICATION

REACTIONS (2)
  - ABORTION SPONTANEOUS [None]
  - DRUG EXPOSURE DURING PREGNANCY [None]
